FAERS Safety Report 11944966 (Version 4)
Quarter: 2016Q2

REPORT INFORMATION
  Report Type: Spontaneous
  Country: US (occurrence: US)
  Receive Date: 20160125
  Receipt Date: 20160425
  Transmission Date: 20160815
  Serious: Yes (Hospitalization, Other)
  Sender: FDA-Public Use
  Company Number: US-PFIZER INC-2016027840

PATIENT
  Age: 31 Year
  Sex: Female
  Weight: 68 kg

DRUGS (21)
  1. WARFARIN [Suspect]
     Active Substance: WARFARIN
     Indication: CEREBROVASCULAR ACCIDENT
     Dosage: UNK, DAILY
     Dates: start: 1988
  2. SYNTHROID [Concomitant]
     Active Substance: LEVOTHYROXINE SODIUM
     Indication: THYROID DISORDER
  3. KEPPRA [Suspect]
     Active Substance: LEVETIRACETAM
     Indication: SEIZURE
     Dosage: 500 MG 4 TABLETS BY MOUTH TWICE A DAY
     Route: 048
     Dates: start: 201108, end: 20160105
  4. FOLIC ACID. [Concomitant]
     Active Substance: FOLIC ACID
     Indication: SEIZURE
     Dosage: 1 MG, 1X/DAY
     Route: 048
     Dates: start: 20151010
  5. RAPAMUNE [Suspect]
     Active Substance: SIROLIMUS
     Indication: RENAL TRANSPLANT
     Dosage: 3 MG, 2X/DAY ((3MG AM; 3MG PM))
  6. REVATIO [Suspect]
     Active Substance: SILDENAFIL CITRATE
     Indication: RAYNAUD^S PHENOMENON
     Dosage: 20MG, HALF A TABLET BY MOUTH THREE TIMES A DAY
     Route: 048
     Dates: start: 2008
  7. CYTOMEL [Concomitant]
     Active Substance: LIOTHYRONINE SODIUM
     Indication: THYROID DISORDER
  8. PREDNISONE. [Concomitant]
     Active Substance: PREDNISONE
     Indication: TRANSPLANT REJECTION
     Dosage: 5 MG, 1X/DAY
     Route: 048
     Dates: start: 20061011
  9. REVATIO [Suspect]
     Active Substance: SILDENAFIL CITRATE
     Indication: GAIT DISTURBANCE
     Dosage: 10 MG, 3X/DAY
     Dates: start: 2010
  10. WARFARIN [Suspect]
     Active Substance: WARFARIN
     Indication: INTERNATIONAL NORMALISED RATIO ABNORMAL
     Dosage: 5 MG, 1X/DAY (PM)
     Dates: start: 2009
  11. VIMPAT [Suspect]
     Active Substance: LACOSAMIDE
     Dosage: 275 MG, 2X/DAY (AM; PM)
     Dates: start: 201108
  12. SYNTHROID [Concomitant]
     Active Substance: LEVOTHYROXINE SODIUM
     Indication: HYPOTHYROIDISM
     Dosage: 150 UG, DAILY
     Route: 048
     Dates: start: 199901
  13. PREDNISONE. [Concomitant]
     Active Substance: PREDNISONE
     Indication: RENAL DISORDER
  14. CYTOMEL [Concomitant]
     Active Substance: LIOTHYRONINE SODIUM
     Indication: HYPOTHYROIDISM
     Dosage: 5 UG, 1X/DAY
     Route: 048
     Dates: start: 199901
  15. LEXAPRO [Concomitant]
     Active Substance: ESCITALOPRAM OXALATE
     Indication: ANXIETY
     Dosage: 10 MG, 1X/DAY
     Route: 048
     Dates: start: 20061020
  16. WARFARIN [Suspect]
     Active Substance: WARFARIN
     Indication: ANTICOAGULANT THERAPY
     Dosage: 2.5 MG, 1X/DAY
     Route: 048
     Dates: start: 1998
  17. VIMPAT [Suspect]
     Active Substance: LACOSAMIDE
     Indication: SEIZURE
     Dosage: 50MG TABLET FIVE AND A HALF TABLETS BY MOUTH TWICE A DAY
     Route: 048
     Dates: start: 2012
  18. VIMPAT [Suspect]
     Active Substance: LACOSAMIDE
     Dosage: UNK
     Dates: start: 20160113
  19. RAPAMUNE [Suspect]
     Active Substance: SIROLIMUS
     Indication: TRANSPLANT REJECTION
     Dosage: 1 MG, 3X/DAY
     Dates: start: 20061011
  20. KEPPRA [Suspect]
     Active Substance: LEVETIRACETAM
     Dosage: 500 MG 5 TABLETS BY MOUTH TWICE A DAY
     Route: 048
     Dates: start: 20160110
  21. LEXAPRO [Concomitant]
     Active Substance: ESCITALOPRAM OXALATE
     Indication: PROPHYLAXIS

REACTIONS (7)
  - Seizure [Recovered/Resolved]
  - Dizziness [Recovered/Resolved]
  - Cardiac arrest [Recovered/Resolved]
  - Generalised tonic-clonic seizure [Recovered/Resolved]
  - Product use issue [Not Recovered/Not Resolved]
  - International normalised ratio increased [Not Recovered/Not Resolved]
  - Eating disorder [Recovered/Resolved]

NARRATIVE: CASE EVENT DATE: 2009
